FAERS Safety Report 4821547-X (Version None)
Quarter: 2005Q4

REPORT INFORMATION
  Report Type: 
  Country: None (occurrence: None)
  Receive Date: 20051103
  Receipt Date: 20051103
  Transmission Date: 20060501
  Serious: Yes (Hospitalization)
  Sender: FDA-Public Use
  Company Number: None

PATIENT
  Age: 25 Year
  Sex: Male
  Weight: 69.8 kg

DRUGS (7)
  1. IL-2 / (CHIRON) [Suspect]
     Indication: MALIGNANT MELANOMA
     Dosage: 720,000 IU IV
     Route: 042
     Dates: start: 20051017, end: 20051023
  2. COLACE [Concomitant]
  3. MS/R [Concomitant]
  4. COMPAZINE [Concomitant]
  5. MS CONTIN [Concomitant]
  6. ATIVAN [Concomitant]
  7. REGLAN [Concomitant]

REACTIONS (7)
  - ABDOMINAL PAIN LOWER [None]
  - BACK PAIN [None]
  - DEHYDRATION [None]
  - DIARRHOEA [None]
  - NAUSEA [None]
  - ORAL INTAKE REDUCED [None]
  - VOMITING [None]
